FAERS Safety Report 13855775 (Version 1)
Quarter: 2017Q3

REPORT INFORMATION
  Report Type: Spontaneous
  Country: US (occurrence: US)
  Receive Date: 20170810
  Receipt Date: 20170810
  Transmission Date: 20171127
  Serious: No
  Sender: FDA-Public Use
  Company Number: US-VIFOR (INTERNATIONAL) INC.-VIT-2017-00227

PATIENT
  Age: 87 Year
  Sex: Female

DRUGS (20)
  1. VITAMIN B COMPLEX [Concomitant]
     Active Substance: CYANOCOBALAMIN\DEXPANTHENOL\NIACINAMIDE\PYRIDOXINE HYDROCHLORIDE\RIBOFLAVIN 5^-PHOSPHATE SODIUM\THIAMINE HYDROCHLORIDE\VITAMIN B COMPLEX
     Dates: start: 20170424
  2. BIOTIN [Concomitant]
     Active Substance: BIOTIN
     Dates: start: 20170424
  3. FISH OIL [Concomitant]
     Active Substance: FISH OIL
     Dates: start: 20170424
  4. ASCORBIC ACID. [Concomitant]
     Active Substance: ASCORBIC ACID
     Dates: start: 20170424
  5. IMDUR [Concomitant]
     Active Substance: ISOSORBIDE MONONITRATE
  6. VELTASSA [Suspect]
     Active Substance: PATIROMER
     Indication: HYPERKALAEMIA
     Route: 048
     Dates: start: 20170105
  7. GUANFACINE. [Concomitant]
     Active Substance: GUANFACINE
     Dates: start: 20170424
  8. AMLODIPINE [Concomitant]
     Active Substance: AMLODIPINE BESYLATE
     Dates: start: 20170424
  9. ACETYLSALICYLIC ACID [Concomitant]
     Active Substance: ASPIRIN
     Dates: start: 20170424
  10. ISOSORBIDE MONONITRATE. [Concomitant]
     Active Substance: ISOSORBIDE MONONITRATE
     Dates: start: 20170424
  11. STOOL SOFETNER [Concomitant]
     Dates: start: 20170424
  12. COLECALCIFEROL [Concomitant]
     Active Substance: CHOLECALCIFEROL
     Dates: start: 20170424
  13. VELTASSA [Suspect]
     Active Substance: PATIROMER
     Route: 048
     Dates: start: 201703
  14. COQ10 [Concomitant]
     Active Substance: UBIDECARENONE
     Dates: start: 20170424
  15. PROBIOTIC [Concomitant]
     Active Substance: PROBIOTICS NOS
     Dates: start: 20170424
  16. RANITIDINE. [Concomitant]
     Active Substance: RANITIDINE
     Dates: start: 20170424
  17. EPOGEN [Concomitant]
     Active Substance: ERYTHROPOIETIN
     Dates: start: 20170424
  18. TENEX [Concomitant]
     Active Substance: GUANFACINE HYDROCHLORIDE
  19. GLIPIZIDE. [Concomitant]
     Active Substance: GLIPIZIDE
     Dates: start: 20170424
  20. HYDRALAZINE [Concomitant]
     Active Substance: HYDRALAZINE HYDROCHLORIDE
     Dates: start: 20170424

REACTIONS (4)
  - Cystitis [Not Recovered/Not Resolved]
  - Abdominal pain upper [Not Recovered/Not Resolved]
  - Urinary tract infection [Not Recovered/Not Resolved]
  - Constipation [Not Recovered/Not Resolved]

NARRATIVE: CASE EVENT DATE: 201704
